FAERS Safety Report 9617801 (Version 2)
Quarter: 2013Q4

REPORT INFORMATION
  Report Type: Spontaneous
  Country: US (occurrence: US)
  Receive Date: 20131011
  Receipt Date: 20131011
  Transmission Date: 20140711
  Serious: Yes (Hospitalization)
  Sender: FDA-Public Use
  Company Number: US-MPIJNJ-2013MPI000462

PATIENT
  Age: 71 Year
  Sex: Female

DRUGS (10)
  1. VELCADE [Suspect]
     Indication: PLASMA CELL MYELOMA
     Dosage: 1.3 MG/M2, 2/WEEK
     Route: 042
     Dates: start: 20130910
  2. GSK2110183 [Suspect]
     Indication: PLASMA CELL MYELOMA
     Dosage: 150 MG, QD
     Route: 048
     Dates: start: 20130910
  3. DEXAMETHASONE [Suspect]
     Indication: PLASMA CELL MYELOMA
     Dosage: 40 MG, 2/WEEK
     Route: 048
     Dates: start: 20130910
  4. AMLODIPINE [Concomitant]
  5. OLMESARTAN MEDOXOMIL [Concomitant]
  6. THYROXINE SODIUM [Concomitant]
  7. ZOLPIDEM TARTRATE [Concomitant]
  8. PROCHLORPERAZINE [Concomitant]
     Dosage: UNK
     Dates: start: 20130909
  9. CO-TRIMOXAZOLE [Concomitant]
  10. SPIRONOLACTONE [Concomitant]

REACTIONS (1)
  - Systemic inflammatory response syndrome [Recovered/Resolved with Sequelae]
